FAERS Safety Report 4817359-3 (Version None)
Quarter: 2005Q4

REPORT INFORMATION
  Report Type: 
  Country: None (occurrence: None)
  Receive Date: 20051101
  Receipt Date: 20051020
  Transmission Date: 20060501
  Serious: Yes (Other)
  Sender: FDA-Public Use
  Company Number: US-GILEAD-2005-0008835

PATIENT
  Sex: Male
  Weight: 55.388 kg

DRUGS (7)
  1. VIREAD [Suspect]
     Indication: HIV INFECTION
     Route: 048
     Dates: start: 20020401, end: 20040920
  2. KALETRA [Concomitant]
     Indication: HIV INFECTION
     Route: 048
     Dates: start: 20020401
  3. VIDEX EC [Concomitant]
     Indication: HIV INFECTION
     Route: 048
     Dates: start: 20020401
  4. TOPROL-XL [Concomitant]
     Indication: CORONARY ARTERY DISEASE
     Route: 048
  5. ASPIRIN [Concomitant]
     Indication: CORONARY ARTERY DISEASE
     Route: 048
  6. TRAZODONE HCL [Concomitant]
     Indication: DEPRESSION
     Route: 048
  7. NEURONTIN [Concomitant]
     Indication: DEPRESSION
     Route: 048

REACTIONS (5)
  - BLOOD CREATININE INCREASED [None]
  - CALCULUS URETERIC [None]
  - FANCONI SYNDROME ACQUIRED [None]
  - NEPHROLITHIASIS [None]
  - URETERIC OBSTRUCTION [None]
